FAERS Safety Report 9063807 (Version 1)
Quarter: 2013Q1

REPORT INFORMATION
  Report Type: Spontaneous
  Country: US (occurrence: US)
  Receive Date: 20130201
  Receipt Date: 20130201
  Transmission Date: 20140127
  Serious: Yes (Other)
  Sender: FDA-Public Use
  Company Number: US-RB-018526-09

PATIENT
  Age: 24 Year
  Sex: Female

DRUGS (4)
  1. SUBOXONE [Suspect]
     Indication: DRUG DEPENDENCE
     Route: 060
     Dates: start: 200811, end: 20090428
  2. SUBOXONE [Suspect]
     Route: 060
  3. SUBOXONE [Suspect]
     Dosage: PATIENT REMAINS ON SUBOXONE, UNKNOWN DOSE
     Route: 065
  4. SUBUTEX [Suspect]
     Indication: DRUG DEPENDENCE
     Route: 060
     Dates: start: 20090429

REACTIONS (4)
  - Exposure during pregnancy [Recovered/Resolved]
  - Nausea [Recovered/Resolved]
  - Placental insufficiency [Recovered/Resolved]
  - Premature delivery [Recovered/Resolved]
